FAERS Safety Report 9314307 (Version 1)
Quarter: 2013Q2

REPORT INFORMATION
  Report Type: Spontaneous
  Country: AR (occurrence: AR)
  Receive Date: 20130529
  Receipt Date: 20130529
  Transmission Date: 20140414
  Serious: Yes (Other)
  Sender: FDA-Public Use
  Company Number: PHHY2013AR053473

PATIENT
  Sex: Female

DRUGS (2)
  1. ZOMETA [Suspect]
     Indication: METASTASES TO BONE
     Dosage: 4 MG, ONCE MONTHLY
     Route: 042
  2. PAMIDRONATE [Concomitant]
     Indication: METASTASES TO BONE

REACTIONS (4)
  - Osteonecrosis of jaw [Recovering/Resolving]
  - Loose tooth [Recovering/Resolving]
  - Bone swelling [Recovering/Resolving]
  - Tooth loss [Recovering/Resolving]
